FAERS Safety Report 4321222-4 (Version None)
Quarter: 2004Q1

REPORT INFORMATION
  Report Type: 
  Country: None (occurrence: None)
  Receive Date: 20040322
  Receipt Date: 20040322
  Transmission Date: 20041129
  Serious: No
  Sender: FDA-Public Use
  Company Number: None

PATIENT
  Age: 49 Year
  Sex: Male
  Weight: 85 kg

DRUGS (5)
  1. ZOCOR [Suspect]
     Indication: CORONARY ARTERY DISEASE
     Dosage: 20MG QHS ORAL
     Route: 048
     Dates: start: 20031014, end: 20040121
  2. ZOCOR [Suspect]
     Indication: HYPERLIPIDAEMIA
     Dosage: 20MG QHS ORAL
     Route: 048
     Dates: start: 20031014, end: 20040121
  3. FOSINOPRIL SODIUM [Concomitant]
  4. HYDROCORTISONE/PRAMOXINE [Concomitant]
  5. OMEPRAZOLE [Concomitant]

REACTIONS (1)
  - MYALGIA [None]
